FAERS Safety Report 9464159 (Version 3)
Quarter: 2013Q4

REPORT INFORMATION
  Report Type: Report from Study
  Country: BR (occurrence: BR)
  Receive Date: 20130819
  Receipt Date: 20131028
  Transmission Date: 20140711
  Serious: No
  Sender: FDA-Public Use
  Company Number: PHHY2013BR089140

PATIENT
  Sex: Female
  Weight: 55 kg

DRUGS (8)
  1. ACLASTA [Suspect]
     Indication: OSTEITIS DEFORMANS
     Dosage: 5 MG, UNK
     Route: 042
     Dates: start: 2009
  2. CALCIUM + VIT D [Concomitant]
     Dosage: UNK UKN, UNK
     Dates: start: 2007
  3. LEVOTHYROXINE [Concomitant]
     Dosage: 50 UG, UNK
     Dates: start: 2012
  4. COMPLEX B                          /00653501/ [Concomitant]
     Dosage: UNK UKN, UNK
  5. AMARYL [Concomitant]
     Dosage: 2 MG, UNK
     Dates: start: 1994
  6. FISH OIL [Concomitant]
     Dosage: UNK UKN, UNK
     Dates: start: 2013
  7. STRESSTAB                          /02364401/ [Concomitant]
     Dosage: UNK UKN, UNK
  8. DEOCIL [Concomitant]
     Dosage: UNK UKN, UNK

REACTIONS (4)
  - Malaise [Unknown]
  - Fibromyalgia [Not Recovered/Not Resolved]
  - Pain [Not Recovered/Not Resolved]
  - Drug ineffective [Not Recovered/Not Resolved]
